FAERS Safety Report 9015518 (Version 1)
Quarter: 2013Q1

REPORT INFORMATION
  Report Type: Spontaneous
  Country: FR (occurrence: FR)
  Receive Date: 20130116
  Receipt Date: 20130116
  Transmission Date: 20140127
  Serious: Yes (Other)
  Sender: FDA-Public Use
  Company Number: FR-JNJFOC-20130103151

PATIENT
  Age: 3 Decade
  Sex: Female

DRUGS (4)
  1. RISPERDAL [Suspect]
     Indication: PERSONALITY DISORDER
     Dosage: AT BED TIME, INITIATED IN JUL OR AUG-2006
     Route: 065
     Dates: end: 20071211
  2. RISPERDAL [Suspect]
     Indication: DEPRESSION
     Dosage: AT BED TIME, INITIATED IN JUL OR AUG-2006
     Route: 065
     Dates: end: 20071211
  3. RISPERDAL [Suspect]
     Indication: CYCLOTHYMIC DISORDER
     Dosage: AT BED TIME, INITIATED IN JUL OR AUG-2006
     Route: 065
     Dates: end: 20071211
  4. SEROPLEX [Concomitant]

REACTIONS (4)
  - Tic [Recovering/Resolving]
  - Neuroleptic malignant syndrome [Recovering/Resolving]
  - Dystonia [Unknown]
  - Bipolar disorder [Unknown]
